FAERS Safety Report 7479548-1 (Version None)
Quarter: 2011Q2

REPORT INFORMATION
  Report Type: 
  Country: None (occurrence: None)
  Receive Date: 20110513
  Receipt Date: 20110502
  Transmission Date: 20111010
  Serious: Yes (Hospitalization, Other)
  Sender: FDA-Public Use
  Company Number: US-CELGENEUS-163-21880-11042525

PATIENT
  Sex: Male

DRUGS (2)
  1. REVLIMID [Suspect]
     Indication: MULTIPLE MYELOMA
     Dosage: 25 MILLIGRAM
     Route: 048
     Dates: start: 20101001
  2. COUMADIN [Concomitant]
     Route: 065

REACTIONS (4)
  - CARDIAC VALVE DISEASE [None]
  - CARDIAC FAILURE CONGESTIVE [None]
  - ATRIAL FLUTTER [None]
  - PANCYTOPENIA [None]
